FAERS Safety Report 12596750 (Version 2)
Quarter: 2017Q4

REPORT INFORMATION
  Report Type: Report from Study
  Country: GR (occurrence: GR)
  Receive Date: 20160726
  Receipt Date: 20171130
  Transmission Date: 20180320
  Serious: Yes (Hospitalization, Other)
  Sender: FDA-Public Use
  Company Number: GR-SEATTLE GENETICS-2016SGN01168

PATIENT
  Age: 55 Year
  Sex: Male
  Weight: 126 kg

DRUGS (1)
  1. BRENTUXIMAB VEDOTIN [Suspect]
     Active Substance: BRENTUXIMAB VEDOTIN
     Indication: HODGKIN^S DISEASE
     Dosage: 180 MG, UNK
     Route: 042
     Dates: start: 20150626

REACTIONS (3)
  - Peripheral sensory neuropathy [Recovered/Resolved]
  - Obstructive airways disorder [Recovered/Resolved]
  - Restrictive pulmonary disease [Recovered/Resolved]

NARRATIVE: CASE EVENT DATE: 20151202
